FAERS Safety Report 15831582 (Version 1)
Quarter: 2019Q1

REPORT INFORMATION
  Report Type: Spontaneous
  Country: US (occurrence: US)
  Receive Date: 20190116
  Receipt Date: 20190116
  Transmission Date: 20190417
  Serious: No
  Sender: FDA-Public Use
  Company Number: US-BIOGEN-2019BI00682228

PATIENT
  Sex: Male
  Weight: 76.73 kg

DRUGS (1)
  1. TECFIDERA [Suspect]
     Active Substance: DIMETHYL FUMARATE
     Indication: MULTIPLE SCLEROSIS
     Route: 048
     Dates: end: 20181217

REACTIONS (3)
  - Drug effect decreased [Unknown]
  - Multiple sclerosis [Unknown]
  - Depression [Recovered/Resolved]
